FAERS Safety Report 21308085 (Version 1)
Quarter: 2022Q3

REPORT INFORMATION
  Report Type: Spontaneous
  Country: US (occurrence: US)
  Receive Date: 20220908
  Receipt Date: 20220908
  Transmission Date: 20221027
  Serious: No
  Sender: FDA-Public Use
  Company Number: US-NIPPON SHINYAKU-NIP-2022-000039

PATIENT

DRUGS (1)
  1. VILTOLARSEN [Suspect]
     Active Substance: VILTOLARSEN
     Indication: Product used for unknown indication
     Dosage: 2100 MILLIGRAM
     Route: 042
     Dates: start: 2021

REACTIONS (4)
  - Sensation of foreign body [Unknown]
  - Back pain [Unknown]
  - Nausea [Unknown]
  - Cough [Recovered/Resolved]
